FAERS Safety Report 11076253 (Version 1)
Quarter: 2015Q2

REPORT INFORMATION
  Report Type: Spontaneous
  Country: CO (occurrence: CO)
  Receive Date: 20150429
  Receipt Date: 20150429
  Transmission Date: 20150821
  Serious: Yes (Other)
  Sender: FDA-Public Use
  Company Number: CO-PFIZER INC-2015140509

PATIENT
  Age: 79 Year
  Sex: Male

DRUGS (5)
  1. TAMSULOSINE [Concomitant]
     Active Substance: TAMSULOSIN HYDROCHLORIDE
     Dosage: 0.04 MG, 1X/DAY (AT NIGHT)
  2. BETAHISTINA [Concomitant]
     Dosage: 8 MG, UNK
  3. DETRUSITOL [Suspect]
     Active Substance: TOLTERODINE TARTRATE
     Indication: PROSTATIC DISORDER
  4. DETRUSITOL [Suspect]
     Active Substance: TOLTERODINE TARTRATE
     Indication: HYPERTONIC BLADDER
     Dosage: 2 MG, 1X/DAY
     Route: 048
  5. DRAMAMINE [Concomitant]
     Active Substance: DIMENHYDRINATE
     Dosage: UNK

REACTIONS (4)
  - Blood urine present [Not Recovered/Not Resolved]
  - Prostatomegaly [Not Recovered/Not Resolved]
  - Dysuria [Not Recovered/Not Resolved]
  - Drug ineffective [Not Recovered/Not Resolved]
